FAERS Safety Report 4632800-7 (Version None)
Quarter: 2005Q1

REPORT INFORMATION
  Report Type: 
  Country: None (occurrence: None)
  Receive Date: 20050325
  Receipt Date: 20041217
  Transmission Date: 20050727
  Serious: No
  Sender: FDA-Public Use
  Company Number: USA041286439

PATIENT
  Age: 70 Year
  Sex: Female
  Weight: 49 kg

DRUGS (5)
  1. FORTEO [Suspect]
     Dosage: 20 UG /1 DAY
     Dates: start: 20040601
  2. EMBREL (ETAMERCE[T) [Concomitant]
  3. METHOTREXATE [Concomitant]
  4. PREDNISONE TAB [Concomitant]
  5. TYLENOL (CAPLET) [Concomitant]

REACTIONS (4)
  - HEPATIC ENZYME INCREASED [None]
  - NASOPHARYNGITIS [None]
  - NAUSEA [None]
  - WEIGHT DECREASED [None]
